FAERS Safety Report 22129113 (Version 1)
Quarter: 2023Q1

REPORT INFORMATION
  Report Type: Spontaneous
  Country: US (occurrence: US)
  Receive Date: 20230323
  Receipt Date: 20230323
  Transmission Date: 20230417
  Serious: No
  Sender: FDA-Public Use
  Company Number: US-009507513-2303USA004703

PATIENT
  Age: 70 Year
  Sex: Female

DRUGS (3)
  1. CUBICIN [Suspect]
     Active Substance: DAPTOMYCIN
     Indication: Endocarditis
     Dosage: SCHEDULED 6-WEEK COURSE
     Route: 042
  2. CEFTRIAXONE [Concomitant]
     Active Substance: CEFTRIAXONE
     Dosage: SCHEDULED 6-WEEK COURSE
     Route: 042
  3. RIFAMPIN [Concomitant]
     Active Substance: RIFAMPIN
     Dosage: SCHEDULED 6-WEEK COURSE
     Route: 042

REACTIONS (1)
  - Product use in unapproved indication [Unknown]
